FAERS Safety Report 18697461 (Version 1)
Quarter: 2021Q1

REPORT INFORMATION
  Report Type: Spontaneous
  Country: CN (occurrence: CN)
  Receive Date: 20210104
  Receipt Date: 20210104
  Transmission Date: 20210419
  Serious: Yes (Other)
  Sender: FDA-Public Use
  Company Number: CN-BAYER-2020-287102

PATIENT
  Age: 63 Year
  Sex: Male

DRUGS (3)
  1. CAMRELIZUMAB [Concomitant]
     Active Substance: CAMRELIZUMAB
     Indication: HEPATIC CANCER
     Dosage: UNK
     Dates: start: 20200413
  2. STIVARGA [Suspect]
     Active Substance: REGORAFENIB
     Indication: HEPATIC CANCER
     Dosage: UNK
     Dates: start: 20200413
  3. NEXAVAR [Suspect]
     Active Substance: SORAFENIB
     Indication: HEPATIC CANCER
     Dosage: UNK
     Route: 048
     Dates: start: 201910, end: 20200413

REACTIONS (10)
  - Tumour embolism [None]
  - Retroperitoneal lymphadenopathy [None]
  - Abdominal lymphadenopathy [None]
  - Blood thyroid stimulating hormone abnormal [None]
  - Metastases to lymph nodes [None]
  - Metastases to liver [None]
  - Metastases to adrenals [None]
  - Diarrhoea [None]
  - Pain of skin [None]
  - Skin fissures [None]

NARRATIVE: CASE EVENT DATE: 20191025
